FAERS Safety Report 10496527 (Version 1)
Quarter: 2014Q4

REPORT INFORMATION
  Report Type: Spontaneous
  Country: US (occurrence: US)
  Receive Date: 20141004
  Receipt Date: 20141004
  Transmission Date: 20150528
  Serious: No
  Sender: FDA-Public Use
  Company Number: US-009507513-1410USA000744

PATIENT
  Sex: Female

DRUGS (1)
  1. ASMANEX [Suspect]
     Active Substance: MOMETASONE FUROATE
     Indication: ASTHMA
     Dosage: STRENGTH 110 (UNITS NOT PROVIDED), DOSE 110 (UNITS NOT PROVIDED), UNK
     Route: 055

REACTIONS (2)
  - Product quality issue [Unknown]
  - Drug dose omission [Unknown]
